APPROVED DRUG PRODUCT: TRAMETINIB DIMETHYL SULFOXIDE
Active Ingredient: TRAMETINIB DIMETHYL SULFOXIDE
Strength: EQ 0.5MG
Dosage Form/Route: TABLET;ORAL
Application: A219002 | Product #001
Applicant: HIKMA PHARMACEUTICALS INTERNATIONAL LTD
Approved: Aug 6, 2024 | RLD: No | RS: No | Type: DISCN